FAERS Safety Report 18869611 (Version 1)
Quarter: 2021Q1

REPORT INFORMATION
  Report Type: Spontaneous
  Country: US (occurrence: US)
  Receive Date: 20210209
  Receipt Date: 20210209
  Transmission Date: 20210420
  Serious: Yes (Other)
  Sender: FDA-Public Use
  Company Number: US-ELI_LILLY_AND_COMPANY-US202101013305

PATIENT
  Age: 61 Year
  Sex: Female
  Weight: 91 kg

DRUGS (5)
  1. TRULICITY [Suspect]
     Active Substance: DULAGLUTIDE
     Indication: TYPE 2 DIABETES MELLITUS
     Dosage: UNK, UNKNOWN
     Route: 065
     Dates: start: 2019, end: 202012
  2. JARDIANCE [Concomitant]
     Active Substance: EMPAGLIFLOZIN
     Indication: PRODUCT USED FOR UNKNOWN INDICATION
     Dosage: UNK, UNKNOWN
     Route: 065
  3. TRINTELLIX [Suspect]
     Active Substance: VORTIOXETINE HYDROBROMIDE
     Indication: DEPRESSION
     Dosage: 10 MG, UNKNOWN
     Route: 065
  4. TRINTELLIX [Suspect]
     Active Substance: VORTIOXETINE HYDROBROMIDE
     Dosage: 15 MG
     Route: 065
  5. TRINTELLIX [Suspect]
     Active Substance: VORTIOXETINE HYDROBROMIDE
     Dosage: 20 MG, UNKNOWN
     Route: 065

REACTIONS (15)
  - Anxiety [Unknown]
  - Diarrhoea [Unknown]
  - Dyspnoea [Unknown]
  - Abnormal dreams [Unknown]
  - Initial insomnia [Unknown]
  - Myocardial infarction [Unknown]
  - Middle insomnia [Unknown]
  - Pruritus [Recovering/Resolving]
  - Alopecia [Recovering/Resolving]
  - Chest pain [Recovered/Resolved]
  - Depression suicidal [Recovered/Resolved]
  - Flatulence [Unknown]
  - Dry mouth [Unknown]
  - Dizziness [Unknown]
  - Glycosylated haemoglobin increased [Unknown]

NARRATIVE: CASE EVENT DATE: 20201001
